FAERS Safety Report 9539388 (Version 1)
Quarter: 2013Q3

REPORT INFORMATION
  Report Type: Spontaneous
  Country: US (occurrence: US)
  Receive Date: 20130920
  Receipt Date: 20130920
  Transmission Date: 20140515
  Serious: Yes (Hospitalization, Other)
  Sender: FDA-Public Use
  Company Number: US-SANOFI-AVENTIS-2013SA092635

PATIENT
  Sex: Male

DRUGS (7)
  1. PLAVIX [Suspect]
     Route: 065
  2. ALLOPURINOL [Concomitant]
     Dosage: FREQUENCY: PM
  3. LIPITOR [Concomitant]
     Dosage: FREQUENCY: PM
  4. LISINOPRIL [Concomitant]
     Dosage: FREQUENCY: AM
  5. LYRICA [Concomitant]
     Dosage: FREQUENCY: AM AND PM
  6. NIASPAN [Concomitant]
     Dosage: AM AND PM
  7. NOVOLOG [Concomitant]
     Dosage: AM + PM DOSE:22 UNIT(S)

REACTIONS (2)
  - Pancreatic carcinoma [Unknown]
  - Bile duct stenosis [Unknown]
